FAERS Safety Report 4746549-3 (Version None)
Quarter: 2005Q3

REPORT INFORMATION
  Report Type: 
  Country: None (occurrence: None)
  Receive Date: 20050815
  Receipt Date: 20050801
  Transmission Date: 20060218
  Serious: Yes (Hospitalization, Other)
  Sender: FDA-Public Use
  Company Number: US_0508120500

PATIENT
  Age: 32 Year
  Sex: Male
  Weight: 89 kg

DRUGS (13)
  1. ZYPREXA [Suspect]
     Indication: BIPOLAR DISORDER
     Dosage: 15 MG DAY
     Dates: start: 20031101
  2. RISPERDAL [Concomitant]
  3. PAXIL [Concomitant]
  4. GABITRIL [Concomitant]
  5. GEMFIBROZIL [Concomitant]
  6. METFORMIN HCL [Concomitant]
  7. PHENERGAN (PROMETHAZINE HYDROCHLORIDE) [Concomitant]
  8. SEROQUEL [Concomitant]
  9. CLONAZEPAM [Concomitant]
  10. METHYLPREDNISOLONE ACETATE [Concomitant]
  11. HYDROXYZINE [Concomitant]
  12. LORAZEPAM [Concomitant]
  13. METHADONE HCL [Concomitant]

REACTIONS (17)
  - APNOEA [None]
  - CARDIAC ENZYMES INCREASED [None]
  - DIABETES MELLITUS [None]
  - DRUG SCREEN POSITIVE [None]
  - DYSPNOEA [None]
  - FEELING ABNORMAL [None]
  - HYPERKALAEMIA [None]
  - HYPERTRIGLYCERIDAEMIA [None]
  - INFLUENZA LIKE ILLNESS [None]
  - LIVER DISORDER [None]
  - LOSS OF CONSCIOUSNESS [None]
  - PANCREATITIS ACUTE [None]
  - PYREXIA [None]
  - RENAL FAILURE [None]
  - RHABDOMYOLYSIS [None]
  - TROPONIN I INCREASED [None]
  - WHITE BLOOD CELL COUNT INCREASED [None]
